FAERS Safety Report 7358552-8 (Version None)
Quarter: 2011Q1

REPORT INFORMATION
  Report Type: 
  Country: None (occurrence: None)
  Receive Date: 20110317
  Receipt Date: 20110308
  Transmission Date: 20110831
  Serious: Yes (Death)
  Sender: FDA-Public Use
  Company Number: DE-NOVOPROD-324572

PATIENT
  Age: 31 Year
  Sex: Female

DRUGS (1)
  1. VICTOZA [Suspect]
     Indication: OBESITY

REACTIONS (2)
  - DEATH [None]
  - OFF LABEL USE [None]
